FAERS Safety Report 13319597 (Version 3)
Quarter: 2017Q2

REPORT INFORMATION
  Report Type: Spontaneous
  Country: US (occurrence: US)
  Receive Date: 20170309
  Receipt Date: 20170517
  Transmission Date: 20170830
  Serious: Yes (Other)
  Sender: FDA-Public Use
  Company Number: US-JNJCP-30000373493

PATIENT
  Age: 53 Year
  Sex: Female
  Weight: 74 kg

DRUGS (4)
  1. MULTI VITAMIN [Concomitant]
     Active Substance: VITAMINS
     Indication: VITAMIN SUPPLEMENTATION
     Dosage: ONE PILL, ONCE PER DAY
  2. 120 MG PROPRANOLOL [Concomitant]
     Indication: TREMOR
     Dosage: 1 PILL, ONCE PER DAY
  3. NEUTROGENA HEALTHY SKIN MAKEUP SUNSCREEN BROAD SPECTRUM SPF20 - BUFF 30 [Suspect]
     Active Substance: TITANIUM DIOXIDE
     Dosage: DIME SIZE AMOUNT, ONCE
     Route: 061
     Dates: start: 20170218, end: 20170218
  4. VITAMIN D [Concomitant]
     Active Substance: CHOLECALCIFEROL
     Indication: VITAMIN SUPPLEMENTATION
     Dosage: ONE PILL, ONCE PER DAY

REACTIONS (6)
  - Visual impairment [Recovered/Resolved]
  - Lacrimation increased [Recovered/Resolved]
  - Eye irritation [Recovered/Resolved]
  - Dermatitis contact [Recovered/Resolved]
  - Eye pruritus [Recovered/Resolved]
  - Ocular hyperaemia [Recovered/Resolved]

NARRATIVE: CASE EVENT DATE: 20170218
